FAERS Safety Report 7579203-3 (Version None)
Quarter: 2011Q2

REPORT INFORMATION
  Report Type: 
  Country: None (occurrence: None)
  Receive Date: 20110628
  Receipt Date: 20110616
  Transmission Date: 20111010
  Serious: Yes (Other)
  Sender: FDA-Public Use
  Company Number: US-BAYER-2011-035480

PATIENT
  Age: 52 Year
  Sex: Female
  Weight: 92.971 kg

DRUGS (3)
  1. SINGULAIR [Concomitant]
  2. AVELOX [Suspect]
     Indication: MALAISE
     Dosage: 400 MG, QD
     Route: 048
     Dates: start: 20110117, end: 20110120
  3. CLARINEX [Concomitant]

REACTIONS (1)
  - TENDON RUPTURE [None]
